FAERS Safety Report 4600623-0 (Version None)
Quarter: 2005Q1

REPORT INFORMATION
  Report Type: 
  Country: None (occurrence: None)
  Receive Date: 20050304
  Receipt Date: 20050216
  Transmission Date: 20050727
  Serious: Yes (Disabling)
  Sender: FDA-Public Use
  Company Number: 2005038151

PATIENT
  Age: 53 Year
  Sex: Male

DRUGS (3)
  1. SILDENAFIL (SILDENAFIL) [Suspect]
     Indication: ERECTILE DYSFUNCTION
     Dosage: (100 MG), ORAL
     Route: 048
  2. FOLIC ACID [Concomitant]
  3. PANTOPRAZOLE (PANTOPRAZOLE) [Concomitant]

REACTIONS (2)
  - CEREBRAL ISCHAEMIA [None]
  - HEMIPARESIS [None]
